FAERS Safety Report 26087342 (Version 2)
Quarter: 2025Q4

REPORT INFORMATION
  Report Type: Report from Study
  Country: US (occurrence: US)
  Receive Date: 20251125
  Receipt Date: 20251203
  Transmission Date: 20260117
  Serious: Yes (Hospitalization, Other)
  Sender: LIQUIDIA TECHNOLOGIES
  Company Number: US-LIQUIDIA TECHNOLOGIES, INC.-LIQ-2025-000750

PATIENT

DRUGS (1)
  1. YUTREPIA [Suspect]
     Active Substance: TREPROSTINIL SODIUM
     Indication: Pulmonary arterial hypertension
     Dosage: 79.5 MICROGRAM, QID (INHALE 2 BREATHS PER CAPSULE 4 TIMES A DAY)
     Route: 055
     Dates: start: 202509

REACTIONS (12)
  - Pulmonary embolism [Unknown]
  - Loss of consciousness [Unknown]
  - Fall [Unknown]
  - Palpitations [Unknown]
  - Cardiac failure [Unknown]
  - Dyspnoea exertional [Unknown]
  - Asthenia [Unknown]
  - Chest pain [Unknown]
  - Dyspnoea [Unknown]
  - Cough [Unknown]
  - Throat irritation [Unknown]
  - Headache [Unknown]

NARRATIVE: CASE EVENT DATE: 20250101
